FAERS Safety Report 11258798 (Version 1)
Quarter: 2015Q3

REPORT INFORMATION
  Report Type: Spontaneous
  Country: US (occurrence: US)
  Receive Date: 20150710
  Receipt Date: 20150710
  Transmission Date: 20151125
  Serious: No
  Sender: FDA-Public Use
  Company Number: US-PURDUE-USA-2014-0116998

PATIENT
  Sex: Female

DRUGS (4)
  1. HYDROCODONE [Concomitant]
     Active Substance: HYDROCODONE
     Indication: PAIN
     Dosage: 1-2 TABS, DAILY
  2. BUTRANS [Suspect]
     Active Substance: BUPRENORPHINE
     Indication: PAIN
     Dosage: 5 MCG/HR, WEEKLY
     Route: 062
  3. APAP [Concomitant]
     Active Substance: ACETAMINOPHEN
     Indication: PAIN
  4. APAP [Concomitant]
     Active Substance: ACETAMINOPHEN
     Indication: INSOMNIA

REACTIONS (4)
  - Fatigue [Unknown]
  - Nausea [Unknown]
  - Drug ineffective [Unknown]
  - Headache [Unknown]
